FAERS Safety Report 14032519 (Version 1)
Quarter: 2017Q4

REPORT INFORMATION
  Report Type: Spontaneous
  Country: ES (occurrence: ES)
  Receive Date: 20171002
  Receipt Date: 20171002
  Transmission Date: 20180321
  Serious: Yes (Other)
  Sender: FDA-Public Use
  Company Number: ES-BAYER-2017-183278

PATIENT
  Age: 48 Year
  Sex: Female

DRUGS (1)
  1. ASPIRIN. [Suspect]
     Active Substance: ASPIRIN
     Indication: ULTRASOUND UTERUS ABNORMAL
     Dosage: 100 MG, QD

REACTIONS (6)
  - Product use in unapproved indication [None]
  - Exposure during pregnancy [None]
  - Optic disc haemorrhage [None]
  - Retinal haemorrhage [None]
  - Papillophlebitis [None]
  - Off label use [None]
